FAERS Safety Report 15201415 (Version 1)
Quarter: 2018Q3

REPORT INFORMATION
  Report Type: Spontaneous
  Country: US (occurrence: GB)
  Receive Date: 20180726
  Receipt Date: 20180726
  Transmission Date: 20181010
  Serious: Yes (Other)
  Sender: FDA-Public Use
  Company Number: US-BAYER-2018-136564

PATIENT
  Sex: Female

DRUGS (1)
  1. MIRENA [Suspect]
     Active Substance: LEVONORGESTREL
     Dosage: 20 MCG/24HR, CONT
     Route: 015
     Dates: start: 201806

REACTIONS (7)
  - Genital haemorrhage [None]
  - Pain in extremity [None]
  - Breast discomfort [None]
  - Myalgia [Not Recovered/Not Resolved]
  - Headache [None]
  - Vaginal haemorrhage [None]
  - Breast pain [None]

NARRATIVE: CASE EVENT DATE: 2018
